FAERS Safety Report 22784426 (Version 6)
Quarter: 2024Q1

REPORT INFORMATION
  Report Type: Report from Study
  Country: JP (occurrence: JP)
  Receive Date: 20230803
  Receipt Date: 20240207
  Transmission Date: 20240409
  Serious: Yes (Other)
  Sender: FDA-Public Use
  Company Number: JP-IPSEN Group, Research and Development-2023-17242

PATIENT
  Age: 67 Year
  Sex: Female

DRUGS (4)
  1. TAZVERIK [Suspect]
     Active Substance: TAZEMETOSTAT HYDROBROMIDE
     Indication: Follicular lymphoma
     Dosage: 800 MG TWICE PER DAY
     Dates: start: 20221228, end: 20230117
  2. TAZVERIK [Suspect]
     Active Substance: TAZEMETOSTAT HYDROBROMIDE
     Dosage: 800 MG TWICE PER DAY
     Dates: start: 20230121, end: 20230207
  3. TAZVERIK [Suspect]
     Active Substance: TAZEMETOSTAT HYDROBROMIDE
     Dosage: 800 MG TWICE PER DAY
     Dates: start: 20230308, end: 20230528
  4. HIZENTRA [Concomitant]
     Active Substance: HUMAN IMMUNOGLOBULIN G
     Indication: Infection prophylaxis
     Route: 058
     Dates: start: 20230301

REACTIONS (7)
  - Electrocardiogram ST segment elevation [Recovered/Resolved]
  - Ventricular hypokinesia [Recovered/Resolved]
  - Neutropenia [Recovered/Resolved]
  - White blood cell count decreased [Recovered/Resolved]
  - Lymphocyte count decreased [Recovering/Resolving]
  - Chest pain [Recovered/Resolved]
  - Platelet count decreased [Recovered/Resolved]

NARRATIVE: CASE EVENT DATE: 20230208
